FAERS Safety Report 6546333-4 (Version None)
Quarter: 2010Q1

REPORT INFORMATION
  Report Type: 
  Country: None (occurrence: None)
  Receive Date: 20100122
  Receipt Date: 20100114
  Transmission Date: 20100710
  Serious: Yes (Other)
  Sender: FDA-Public Use
  Company Number: GB-ROCHE-680577

PATIENT
  Age: 10 Year
  Sex: Female

DRUGS (2)
  1. TAMIFLU [Suspect]
     Indication: H1N1 INFLUENZA
     Dosage: DRUG WITHDRAWN.
     Route: 065
     Dates: start: 20090612, end: 20090713
  2. PARACETAMOL [Concomitant]

REACTIONS (1)
  - CONVULSION [None]
